FAERS Safety Report 6608789 (Version 15)
Quarter: 2013Q4

REPORT INFORMATION
  Report Type: Spontaneous
  Country: US (occurrence: US)
  Receive Date: 20080407
  Receipt Date: 20131121
  Transmission Date: 20140711
  Serious: Yes (Death, Hospitalization, Other)
  Sender: FDA-Public Use
  Company Number: PHEH2008US03194

PATIENT
  Sex: Female
  Weight: 73.47 kg

DRUGS (29)
  1. AREDIA [Suspect]
     Route: 042
  2. ZOMETA [Suspect]
     Route: 042
  3. TAMOXIFEN [Concomitant]
  4. DURAGESIC [Concomitant]
  5. ATIVAN [Concomitant]
  6. LOTREL [Concomitant]
  7. PERCOCET [Concomitant]
     Dosage: 325 MG, QID
  8. LORTAB [Concomitant]
  9. FEMARA [Concomitant]
     Dosage: 2.5 MG, QD
  10. AUGMENTIN                               /SCH/ [Concomitant]
  11. FENTANYL [Concomitant]
  12. LOVASTATIN [Concomitant]
  13. BENAZEPRIL [Concomitant]
  14. ISOSORBIDE [Concomitant]
  15. MOBIC [Concomitant]
  16. AMBIEN [Concomitant]
  17. NEXIUM [Concomitant]
  18. MACRODANTIN [Concomitant]
     Dosage: 100 MG
     Route: 048
  19. FLEXERIL [Concomitant]
  20. ULTRAM [Concomitant]
     Dosage: 50 MG
  21. VITAMINS [Concomitant]
  22. VIOXX [Concomitant]
  23. LEVAQUIN [Concomitant]
  24. ASA [Concomitant]
  25. PLAVIX [Concomitant]
  26. NTG [Concomitant]
  27. DARVOCET-N [Concomitant]
  28. PAROXETINE [Concomitant]
     Dosage: 40 MG, QD
  29. ESTER-C [Concomitant]
     Dosage: 500 MG, QD

REACTIONS (93)
  - Foot deformity [Unknown]
  - Vertebral osteophyte [Unknown]
  - Hypoaesthesia [Unknown]
  - Paraesthesia [Unknown]
  - Amnesia [Unknown]
  - Oesophageal mucosa erythema [Unknown]
  - Duodenal stenosis [Unknown]
  - Oedema mucosal [Unknown]
  - Osteolysis [Unknown]
  - Retroperitoneal mass [Unknown]
  - Dilatation intrahepatic duct acquired [Unknown]
  - Cholelithiasis [Unknown]
  - Gallbladder disorder [Unknown]
  - Abdominal pain [Unknown]
  - Death [Fatal]
  - Coronary artery disease [Unknown]
  - Osteonecrosis of jaw [Unknown]
  - Pain [Unknown]
  - Infection [Unknown]
  - Scar [Unknown]
  - Injury [Unknown]
  - Emotional distress [Unknown]
  - Anxiety [Unknown]
  - Physical disability [Unknown]
  - Osteomyelitis [Unknown]
  - Angina pectoris [Unknown]
  - Metastases to bone [Unknown]
  - Gastritis [Unknown]
  - Osteoporosis [Unknown]
  - Spinal osteoarthritis [Unknown]
  - Back pain [Unknown]
  - Osteosclerosis [Unknown]
  - Lymphadenopathy [Unknown]
  - Hydronephrosis [Unknown]
  - Melaena [Recovered/Resolved]
  - Duodenitis [Unknown]
  - Oesophagitis [Unknown]
  - Urinary tract infection [Unknown]
  - Tooth disorder [Unknown]
  - Swelling [Unknown]
  - Oral mucosal erythema [Unknown]
  - Pain in jaw [Unknown]
  - Purulence [Unknown]
  - Escherichia infection [Unknown]
  - Bone disorder [Unknown]
  - Weight decreased [Unknown]
  - Gastrooesophageal reflux disease [Unknown]
  - Hyperplasia [Unknown]
  - Blood iron decreased [Unknown]
  - Blood triglycerides increased [Unknown]
  - Blood lactate dehydrogenase increased [Unknown]
  - Cardiomegaly [Unknown]
  - Urinary retention [Unknown]
  - Vaginal haemorrhage [Unknown]
  - Endometrial adenocarcinoma [Unknown]
  - Uterine leiomyoma [Unknown]
  - Abdominal hernia [Unknown]
  - Granulocytes maturation arrest [Unknown]
  - Lymphocytosis [Unknown]
  - Eosinophilia [Unknown]
  - Arthralgia [Unknown]
  - Nausea [Unknown]
  - Bronchitis [Unknown]
  - Cough [Unknown]
  - Arteriosclerosis [Unknown]
  - Mitral valve incompetence [Unknown]
  - Left atrial dilatation [Unknown]
  - Myocardial infarction [Unknown]
  - Osteoarthritis [Unknown]
  - Mitral valve calcification [Unknown]
  - Tricuspid valve incompetence [Unknown]
  - Left ventricular hypertrophy [Unknown]
  - Cellulitis [Unknown]
  - Pain in extremity [Unknown]
  - Kidney infection [Unknown]
  - Gait disturbance [Unknown]
  - Dizziness [Unknown]
  - Fatigue [Unknown]
  - Dysuria [Unknown]
  - Biliary dilatation [Unknown]
  - Gallbladder enlargement [Unknown]
  - Pancreatic duct dilatation [Unknown]
  - Pancreatic atrophy [Unknown]
  - Renal atrophy [Unknown]
  - Gastric dilatation [Unknown]
  - Scoliosis [Unknown]
  - Depression [Unknown]
  - Splenomegaly [Unknown]
  - Hepatomegaly [Unknown]
  - Impaired gastric emptying [Unknown]
  - Burning sensation [Unknown]
  - Sciatica [Unknown]
  - Tooth abscess [Unknown]
